FAERS Safety Report 6194072-4 (Version None)
Quarter: 2009Q2

REPORT INFORMATION
  Report Type: 
  Country: None (occurrence: None)
  Receive Date: 20090518
  Receipt Date: 20090511
  Transmission Date: 20091009
  Serious: Yes (Other)
  Sender: FDA-Public Use
  Company Number: US-GILEAD-2009-0021919

PATIENT
  Sex: Female
  Weight: 49.032 kg

DRUGS (10)
  1. LETAIRIS [Suspect]
     Route: 048
     Dates: start: 20080709
  2. VENTAVIS [Concomitant]
  3. VIAGRA [Concomitant]
  4. COUMADIN [Concomitant]
  5. OXYGEN [Concomitant]
  6. DIGOXIN [Concomitant]
  7. LEVOTHYROXINE SODIUM [Concomitant]
  8. LANTUS [Concomitant]
  9. INSULIN LISPRO [Concomitant]
  10. DOXEPIN HCL [Concomitant]

REACTIONS (1)
  - PREGNANCY [None]
